FAERS Safety Report 7225942-3 (Version None)
Quarter: 2011Q1

REPORT INFORMATION
  Report Type: 
  Country: None (occurrence: None)
  Receive Date: 20110113
  Receipt Date: 20110110
  Transmission Date: 20110831
  Serious: Yes (Hospitalization)
  Sender: FDA-Public Use
  Company Number: GB-PFIZER INC-2011006404

PATIENT
  Age: 56 Year
  Sex: Female
  Weight: 70 kg

DRUGS (8)
  1. AMITRIPTYLINE [Concomitant]
     Dosage: 5 MG, 1X/DAY
     Route: 048
  2. SULFASALAZINE [Suspect]
     Indication: SEBORRHOEIC KERATOSIS
     Dosage: 1 G, 2X/DAY
     Route: 048
     Dates: start: 20100907, end: 20100923
  3. EZETIMIBE [Concomitant]
     Dosage: 10 MG, 1X/DAY
     Route: 048
  4. NAPROXEN [Concomitant]
     Dosage: 500 MG, 2X/DAY
     Route: 048
  5. FOLIC ACID [Concomitant]
     Dosage: 5 MG THREE TIMES WEEKLY
     Route: 048
  6. PANTOPRAZOLE [Concomitant]
     Dosage: 40 MG, 1X/DAY
     Route: 048
  7. METHOTREXATE [Concomitant]
     Dosage: 25 MG, WEEKLY
     Route: 048
  8. CO-CODAMOL [Concomitant]
     Dosage: 2 DF, 4X/DAY
     Route: 048

REACTIONS (4)
  - AGITATION [None]
  - MALAISE [None]
  - COGNITIVE DISORDER [None]
  - AMNESIA [None]
